FAERS Safety Report 8514992-2 (Version None)
Quarter: 2012Q3

REPORT INFORMATION
  Report Type: 
  Country: None (occurrence: None)
  Receive Date: 20120717
  Receipt Date: 20120713
  Transmission Date: 20120928
  Serious: No
  Sender: FDA-Public Use
  Company Number: US-TEVA-348699USA

PATIENT
  Sex: Female

DRUGS (2)
  1. ORAL CONTRACEPTIVE [Suspect]
     Indication: CONTRACEPTION
     Route: 048
  2. PLAN B ONE-STEP [Suspect]
     Indication: POST COITAL CONTRACEPTION
     Dosage: 1.5 MILLIGRAM;
     Route: 048
     Dates: start: 20120712, end: 20120712

REACTIONS (1)
  - VOMITING [None]
